FAERS Safety Report 8541776-1 (Version None)
Quarter: 2012Q3

REPORT INFORMATION
  Report Type: 
  Country: None (occurrence: None)
  Receive Date: 20120726
  Receipt Date: 20110901
  Transmission Date: 20120928
  Serious: No
  Sender: FDA-Public Use
  Company Number: US-ASTRAZENECA-2011SE52808

PATIENT
  Sex: Female

DRUGS (1)
  1. SEROQUEL [Suspect]
     Route: 048
     Dates: start: 20080101

REACTIONS (5)
  - AGGRESSION [None]
  - MOOD SWINGS [None]
  - ANXIETY [None]
  - PANIC ATTACK [None]
  - DEPRESSION [None]
